FAERS Safety Report 8468814-9 (Version None)
Quarter: 2012Q2

REPORT INFORMATION
  Report Type: 
  Country: None (occurrence: None)
  Receive Date: 20120626
  Receipt Date: 20111220
  Transmission Date: 20120825
  Serious: Yes (Other)
  Sender: FDA-Public Use
  Company Number: CL-ROCHE-1024745

PATIENT
  Weight: 46 kg

DRUGS (1)
  1. XELODA [Suspect]
     Indication: BREAST CANCER
     Route: 048
     Dates: start: 20110528, end: 20111026

REACTIONS (2)
  - PULMONARY OEDEMA [None]
  - WEIGHT DECREASED [None]
